FAERS Safety Report 21176699 (Version 1)
Quarter: 2022Q3

REPORT INFORMATION
  Report Type: Spontaneous
  Country: US (occurrence: None)
  Receive Date: 20220804
  Receipt Date: 20220804
  Transmission Date: 20221027
  Serious: Yes (Life-Threatening)
  Sender: FDA-Public Use
  Company Number: None

PATIENT
  Age: 70 Year
  Sex: Female
  Weight: 66.6 kg

DRUGS (3)
  1. ROSUVASTATIN [Suspect]
     Active Substance: ROSUVASTATIN
     Indication: Blood cholesterol
     Dosage: OTHER QUANTITY : 1 TABLET(S);?FREQUENCY : AT BEDTIME;?
     Route: 048
     Dates: start: 20220720, end: 20220729
  2. ALENDRONATE [Concomitant]
     Active Substance: ALENDRONATE SODIUM
  3. GENERAL MULTIVITAMIN [Concomitant]

REACTIONS (7)
  - Pain [None]
  - Nightmare [None]
  - Insomnia [None]
  - Eye pain [None]
  - Depression [None]
  - Back pain [None]
  - Drug ineffective [None]

NARRATIVE: CASE EVENT DATE: 20220729
